FAERS Safety Report 24717436 (Version 1)
Quarter: 2024Q4

REPORT INFORMATION
  Report Type: Report from Study
  Country: US (occurrence: US)
  Receive Date: 20241210
  Receipt Date: 20241210
  Transmission Date: 20250114
  Serious: Yes (Other)
  Sender: ABBVIE
  Company Number: US-ABBVIE-5787597

PATIENT
  Sex: Male

DRUGS (1)
  1. IMBRUVICA [Suspect]
     Active Substance: IBRUTINIB
     Indication: Chronic lymphocytic leukaemia
     Route: 048
     Dates: start: 20220603, end: 20241204

REACTIONS (8)
  - Paranasal sinus haemorrhage [Unknown]
  - Chronic sinusitis [Unknown]
  - Arthralgia [Unknown]
  - Memory impairment [Unknown]
  - Emotional disorder [Unknown]
  - Fatigue [Unknown]
  - Oesophageal haemorrhage [Unknown]
  - Gastric haemorrhage [Unknown]
